FAERS Safety Report 7429727-4 (Version None)
Quarter: 2011Q2

REPORT INFORMATION
  Report Type: 
  Country: None (occurrence: None)
  Receive Date: 20110418
  Receipt Date: 20110418
  Transmission Date: 20111010
  Serious: Yes (Other)
  Sender: FDA-Public Use
  Company Number: None

PATIENT
  Age: 34 Year
  Sex: Female
  Weight: 65.7716 kg

DRUGS (3)
  1. LUPRON DEPOT INJ 3.75 PHARMACY SOLUTIONS [Suspect]
     Indication: UTERINE LEIOMYOMA
     Dosage: 3.75 ONCE A MONTH IM
     Route: 030
     Dates: start: 20110106, end: 20110307
  2. LUPRON DEPOT INJ 3.75 PHARMACY SOLUTIONS [Suspect]
     Indication: UTERINE LEIOMYOMA
     Dosage: 3.75 ONCE A MONTH IM
     Route: 030
     Dates: start: 20110206, end: 20110406
  3. LUPRON DEPOT INJ 3.75 PHARMACY SOLUTIONS [Suspect]

REACTIONS (6)
  - VISION BLURRED [None]
  - DIZZINESS [None]
  - THROMBOSIS [None]
  - HOT FLUSH [None]
  - OEDEMA PERIPHERAL [None]
  - ASTHENIA [None]
